FAERS Safety Report 7119252-2 (Version None)
Quarter: 2010Q4

REPORT INFORMATION
  Report Type: 
  Country: None (occurrence: None)
  Receive Date: 20101123
  Receipt Date: 20101116
  Transmission Date: 20110411
  Serious: Yes (Other)
  Sender: FDA-Public Use
  Company Number: US-BAYER-201023657BCC

PATIENT
  Age: 57 Year
  Sex: Male
  Weight: 143 kg

DRUGS (5)
  1. ALEVE [Suspect]
     Indication: ARTHRALGIA
     Dosage: TOTAL DAILY DOSE: 440 MG  UNIT DOSE: 220 MG
     Route: 048
     Dates: start: 20101101
  2. ALEVE [Suspect]
     Route: 048
     Dates: start: 20100101, end: 20100101
  3. ALEVE (CAPLET) [Suspect]
     Indication: ARTHRALGIA
     Route: 048
     Dates: start: 20100101, end: 20100101
  4. ALEVE (CAPLET) [Suspect]
     Dosage: TOTAL DAILY DOSE: 440 MG  UNIT DOSE: 220 MG
     Route: 048
     Dates: start: 20101101
  5. HIGH BLOOD PRESSURE PILL [Concomitant]

REACTIONS (2)
  - EPISTAXIS [None]
  - NASAL ULCER [None]
